FAERS Safety Report 7757127-6 (Version None)
Quarter: 2011Q3

REPORT INFORMATION
  Report Type: 
  Country: None (occurrence: None)
  Receive Date: 20110916
  Receipt Date: 20110912
  Transmission Date: 20111222
  Serious: Yes (Hospitalization)
  Sender: FDA-Public Use
  Company Number: FR-MERCK-1109FRA00049

PATIENT
  Age: 50 Year
  Sex: Male
  Weight: 50 kg

DRUGS (12)
  1. CLINDAMYCIN HCL [Concomitant]
     Route: 065
  2. FOLINIC ACID [Concomitant]
     Route: 065
  3. ALFUZOSIN HCL [Concomitant]
     Route: 065
  4. TRAMADOL HCL [Concomitant]
     Route: 065
  5. PYRIDOXINE [Concomitant]
     Route: 065
  6. ABACAVIR SULFATE AND LAMIVUDINE [Concomitant]
     Indication: HIV INFECTION
     Route: 065
     Dates: start: 20100602, end: 20100929
  7. ABACAVIR SULFATE AND LAMIVUDINE [Concomitant]
     Route: 065
     Dates: start: 20110812
  8. NIACINAMIDE [Concomitant]
     Route: 065
  9. PYRIMETHAMINE TAB [Concomitant]
     Route: 065
  10. THIAMINE [Concomitant]
     Route: 065
  11. ISENTRESS [Suspect]
     Indication: HIV INFECTION
     Route: 048
     Dates: start: 20100602, end: 20100929
  12. ISENTRESS [Suspect]
     Route: 048
     Dates: start: 20110812

REACTIONS (2)
  - ISCHAEMIC STROKE [None]
  - CEREBRAL TOXOPLASMOSIS [None]
